FAERS Safety Report 18177610 (Version 1)
Quarter: 2020Q3

REPORT INFORMATION
  Report Type: Other
  Country: MX (occurrence: MX)
  Receive Date: 20200821
  Receipt Date: 20200821
  Transmission Date: 20201103
  Serious: Yes (Hospitalization, Disabling, Other)
  Sender: FDA-Public Use
  Company Number: MX-ROCHE-2662229

PATIENT
  Age: 33 Year
  Sex: Male

DRUGS (8)
  1. VINCRISTINE [Concomitant]
     Active Substance: VINCRISTINE
     Indication: DIFFUSE LARGE B-CELL LYMPHOMA
     Dosage: DOSE WAS NOT REPORTED AND THE FREQUENCY WAS ONCE EVERY 20 TO 25 DAYS
     Route: 042
     Dates: start: 2019
  2. CYCLOPHOSPHAMIDE. [Concomitant]
     Active Substance: CYCLOPHOSPHAMIDE
     Indication: DIFFUSE LARGE B-CELL LYMPHOMA
     Dosage: DOSE WAS NOT REPORTED AND THE FREQUENCY WAS ONCE EVERY 20 TO 25 DAYS
     Route: 042
     Dates: start: 2019
  3. PLATELETS [Concomitant]
     Active Substance: HUMAN PLATELET, ALLOGENIC
     Indication: ANAEMIA
     Route: 042
     Dates: start: 2019
  4. PREDNISONE. [Concomitant]
     Active Substance: PREDNISONE
     Dosage: DOSE WAS NOT REPORTED AND THE FREQUENCY WAS ONCE EVERY 20 TO 25 DAYS
     Route: 048
  5. RITUXIMAB. [Suspect]
     Active Substance: RITUXIMAB
     Indication: DIFFUSE LARGE B-CELL LYMPHOMA
     Dosage: DOSE WAS NOT REPORTED AND THE FREQUENCY WAS ONCE EVERY 20 TO 25 DAYS
     Route: 042
     Dates: start: 2019
  6. DOXORUBICIN [Concomitant]
     Active Substance: DOXORUBICIN
     Indication: DIFFUSE LARGE B-CELL LYMPHOMA
     Dosage: DOSE WAS NOT REPORTED AND THE FREQUENCY WAS ONCE EVERY 20 TO 25 DAYS
     Route: 042
     Dates: start: 2019
  7. ONDANSETRON [Concomitant]
     Active Substance: ONDANSETRON
     Indication: NAUSEA
     Dosage: DOSE WAS NOT REPORTED AND THE FREQUENCY WAS DURING THREE DAYS EVERY 20 TO 25 DAYS
     Route: 048
     Dates: start: 2019
  8. PREDNISONE. [Concomitant]
     Active Substance: PREDNISONE
     Indication: DIFFUSE LARGE B-CELL LYMPHOMA
     Dosage: DOSE WAS NOT REPORTED AND THE FREQUENCY WAS ONCE EVERY 20 TO 25 DAYS
     Route: 042
     Dates: start: 2019

REACTIONS (11)
  - Depression [Unknown]
  - Tachycardia [Unknown]
  - Suffocation feeling [Unknown]
  - Decreased immune responsiveness [Unknown]
  - Anaemia [Recovered/Resolved]
  - Asthenia [Unknown]
  - Dysgeusia [Unknown]
  - Nausea [Unknown]
  - Vomiting [Unknown]
  - Product odour abnormal [Unknown]
  - Gait disturbance [Unknown]
